FAERS Safety Report 7025213-4 (Version None)
Quarter: 2010Q4

REPORT INFORMATION
  Report Type: 
  Country: None (occurrence: None)
  Receive Date: 20101001
  Receipt Date: 20100922
  Transmission Date: 20110411
  Serious: Yes (Hospitalization)
  Sender: FDA-Public Use
  Company Number: US-ABBOTT-10P-163-0672855-00

PATIENT
  Sex: Male
  Weight: 81.72 kg

DRUGS (5)
  1. NIASPAN [Suspect]
     Indication: HIGH DENSITY LIPOPROTEIN DECREASED
     Dates: start: 20100801, end: 20100801
  2. LISINOPRIL [Concomitant]
     Indication: HYPERTENSION
  3. VITAMIN B3 [Concomitant]
     Indication: VITAMIN SUPPLEMENTATION
  4. GRAPE C EXTRACT [Concomitant]
     Indication: SUPPLEMENTATION THERAPY
  5. DHEA [Concomitant]
     Indication: SUPPLEMENTATION THERAPY

REACTIONS (5)
  - FATIGUE [None]
  - HAEMORRHOIDAL HAEMORRHAGE [None]
  - HEADACHE [None]
  - MUSCLE TIGHTNESS [None]
  - PRURITUS [None]
